FAERS Safety Report 17452165 (Version 2)
Quarter: 2020Q1

REPORT INFORMATION
  Report Type: Spontaneous
  Country: BR (occurrence: BR)
  Receive Date: 20200224
  Receipt Date: 20200313
  Transmission Date: 20200409
  Serious: No
  Sender: FDA-Public Use
  Company Number: BR-PFIZER INC-2020077681

PATIENT
  Age: 17 Year
  Sex: Male
  Weight: 44.5 kg

DRUGS (1)
  1. GENOTROPIN [Suspect]
     Active Substance: SOMATROPIN
     Indication: BODY HEIGHT BELOW NORMAL
     Dosage: UNK
     Dates: start: 2018

REACTIONS (1)
  - No adverse event [Not Recovered/Not Resolved]
